FAERS Safety Report 17457170 (Version 1)
Quarter: 2020Q1

REPORT INFORMATION
  Report Type: Spontaneous
  Country: FR (occurrence: FR)
  Receive Date: 20200225
  Receipt Date: 20200225
  Transmission Date: 20200409
  Serious: Yes (Hospitalization)
  Sender: FDA-Public Use
  Company Number: FR-MYLANLABS-2020M1019637

PATIENT
  Age: 59 Year
  Sex: Male
  Weight: 85 kg

DRUGS (3)
  1. SILDENAFIL. [Suspect]
     Active Substance: SILDENAFIL
     Indication: PULMONARY ARTERIAL HYPERTENSION
     Dosage: 20 MILLIGRAM, QD
     Route: 048
     Dates: end: 20191005
  2. JAKAVI [Suspect]
     Active Substance: RUXOLITINIB
     Indication: ANTISYNTHETASE SYNDROME
     Dosage: 20 MILLIGRAM, QD
     Route: 048
     Dates: start: 201812, end: 20191005
  3. ISOPTINE [Suspect]
     Active Substance: VERAPAMIL HYDROCHLORIDE
     Indication: CARDIAC DISORDER
     Dosage: 240 MILLIGRAM, QD
     Route: 048
     Dates: end: 20191005

REACTIONS (4)
  - Acute kidney injury [Recovering/Resolving]
  - Cardiogenic shock [Recovering/Resolving]
  - Acute pulmonary oedema [Recovering/Resolving]
  - Acute respiratory distress syndrome [Recovering/Resolving]

NARRATIVE: CASE EVENT DATE: 20191005
